FAERS Safety Report 17681055 (Version 2)
Quarter: 2020Q2

REPORT INFORMATION
  Report Type: Report from Study
  Country: US (occurrence: US)
  Receive Date: 20200417
  Receipt Date: 20200519
  Transmission Date: 20200714
  Serious: No
  Sender: FDA-Public Use
  Company Number: US-GLAXOSMITHKLINE-2019-TSO02328-US

PATIENT
  Age: 78 Year
  Sex: Female

DRUGS (8)
  1. DULOXETINE. [Concomitant]
     Active Substance: DULOXETINE
     Indication: NEUROPATHY PERIPHERAL
     Dosage: UNK
  2. CYMBALTA [Concomitant]
     Active Substance: DULOXETINE HYDROCHLORIDE
     Indication: NEUROPATHY PERIPHERAL
     Dosage: UNK
  3. NIRAPARIB [Suspect]
     Active Substance: NIRAPARIB
     Dosage: 200 MG, QD
     Route: 048
  4. BIOTIN [Concomitant]
     Active Substance: BIOTIN
     Indication: PRODUCT USED FOR UNKNOWN INDICATION
     Dosage: UNK
  5. VITAMIN B12 [Concomitant]
     Active Substance: CYANOCOBALAMIN
     Indication: PRODUCT USED FOR UNKNOWN INDICATION
     Dosage: UNK
  6. NIRAPARIB [Suspect]
     Active Substance: NIRAPARIB
     Dosage: 200 MG, QD HS WITHOUT FOOD
     Route: 048
     Dates: start: 20190701
  7. VITAMIN C [Concomitant]
     Active Substance: ASCORBIC ACID
     Indication: PRODUCT USED FOR UNKNOWN INDICATION
     Dosage: UNK
  8. NIRAPARIB [Suspect]
     Active Substance: NIRAPARIB
     Indication: OVARIAN CANCER
     Dosage: 200 MG, QD. HS WITHOUT FOOD
     Route: 048
     Dates: start: 20190420

REACTIONS (7)
  - Alopecia [Recovering/Resolving]
  - Tendon rupture [Recovered/Resolved]
  - Fatigue [Recovering/Resolving]
  - Onychoclasis [Recovering/Resolving]
  - Musculoskeletal discomfort [Unknown]
  - Pain in extremity [Unknown]
  - Energy increased [Unknown]

NARRATIVE: CASE EVENT DATE: 20191127
